FAERS Safety Report 11083333 (Version 1)
Quarter: 2015Q2

REPORT INFORMATION
  Report Type: Report from Study
  Country: US (occurrence: US)
  Receive Date: 20150501
  Receipt Date: 20150501
  Transmission Date: 20150821
  Serious: No
  Sender: FDA-Public Use
  Company Number: US-ABBVIE-14P-163-1265923-00

PATIENT
  Age: 44 Year
  Sex: Male
  Weight: 93.07 kg

DRUGS (1)
  1. ANDROGEL [Suspect]
     Active Substance: TESTOSTERONE
     Indication: PRODUCT USED FOR UNKNOWN INDICATION
     Dosage: 4 PUMPS DAILY
     Route: 061
     Dates: start: 201406

REACTIONS (1)
  - Homosexuality [Not Recovered/Not Resolved]

NARRATIVE: CASE EVENT DATE: 201407
